FAERS Safety Report 20482468 (Version 1)
Quarter: 2022Q1

REPORT INFORMATION
  Report Type: Report from Study
  Country: US (occurrence: US)
  Receive Date: 20220217
  Receipt Date: 20220217
  Transmission Date: 20220424
  Serious: Yes (Hospitalization)
  Sender: FDA-Public Use
  Company Number: US-BIOGEN-2022BI01095973

PATIENT
  Age: 50 Year
  Sex: Female

DRUGS (2)
  1. VUMERITY [Suspect]
     Active Substance: DIROXIMEL FUMARATE
     Indication: Multiple sclerosis
     Route: 065
     Dates: start: 20210819
  2. VUMERITY [Suspect]
     Active Substance: DIROXIMEL FUMARATE
     Dosage: MAINTENANCE DOSE
     Route: 065
     Dates: start: 202202

REACTIONS (11)
  - Infection [Unknown]
  - Abdominal infection [Unknown]
  - Urinary tract infection [Recovered/Resolved]
  - Central nervous system lesion [Unknown]
  - Mental disorder [Unknown]
  - Cognitive disorder [Not Recovered/Not Resolved]
  - Vertigo [Unknown]
  - Prescribed overdose [Recovered/Resolved]
  - Multiple sclerosis relapse [Unknown]
  - Pain [Unknown]
  - Flushing [Recovered/Resolved]

NARRATIVE: CASE EVENT DATE: 20220201
